FAERS Safety Report 6021998-4 (Version None)
Quarter: 2008Q4

REPORT INFORMATION
  Report Type: 
  Country: None (occurrence: None)
  Receive Date: 20081223
  Receipt Date: 20081209
  Transmission Date: 20090506
  Serious: Yes (Death, Hospitalization, Other)
  Sender: FDA-Public Use
  Company Number: 54996

PATIENT
  Age: 64 Year
  Sex: Female

DRUGS (1)
  1. CYCLOSPORINE [Suspect]
     Indication: IMMUNOSUPPRESSION

REACTIONS (7)
  - BRONCHOPULMONARY ASPERGILLOSIS [None]
  - CARDIAC DISORDER [None]
  - CYTOMEGALOVIRUS INFECTION [None]
  - LARGE INTESTINE PERFORATION [None]
  - LOWER GASTROINTESTINAL HAEMORRHAGE [None]
  - PANCYTOPENIA [None]
  - TRANSPLANT REJECTION [None]
